FAERS Safety Report 5006121-7 (Version None)
Quarter: 2006Q1

REPORT INFORMATION
  Report Type: 
  Country: None (occurrence: None)
  Receive Date: 20060328
  Receipt Date: 20060104
  Transmission Date: 20060701
  Serious: No
  Sender: FDA-Public Use
  Company Number: 05P-163-0319596-00

PATIENT
  Sex: Male
  Weight: 90.7194 kg

DRUGS (6)
  1. HUMIRA [Suspect]
     Indication: RHEUMATOID ARTHRITIS
     Dosage: SEE IMAGE
     Route: 058
     Dates: start: 20050801, end: 20050901
  2. HUMIRA [Suspect]
     Indication: RHEUMATOID ARTHRITIS
     Dosage: SEE IMAGE
     Route: 058
     Dates: start: 20051001
  3. NAPROXEN [Concomitant]
  4. AZATHIOPRINE [Concomitant]
  5. ATENOLOL [Concomitant]
  6. DIGOXIN [Concomitant]

REACTIONS (3)
  - CONDITION AGGRAVATED [None]
  - INFECTION [None]
  - RHEUMATOID ARTHRITIS [None]
